FAERS Safety Report 5036638-0 (Version None)
Quarter: 2006Q2

REPORT INFORMATION
  Report Type: 
  Country: None (occurrence: None)
  Receive Date: 20060616
  Receipt Date: 20060412
  Transmission Date: 20061013
  Serious: No
  Sender: FDA-Public Use
  Company Number: 2006RL000142

PATIENT
  Age: 55 Year
  Sex: Female

DRUGS (1)
  1. OMACOR [Suspect]
     Indication: HYPERTRIGLYCERIDAEMIA
     Dosage: 4 GM;QD;PO
     Route: 048

REACTIONS (2)
  - BLOOD TRIGLYCERIDES INCREASED [None]
  - DRUG INEFFECTIVE [None]
